FAERS Safety Report 7972018-3 (Version None)
Quarter: 2011Q4

REPORT INFORMATION
  Report Type: 
  Country: None (occurrence: None)
  Receive Date: 20111212
  Receipt Date: 20111208
  Transmission Date: 20120403
  Serious: Yes (Hospitalization)
  Sender: FDA-Public Use
  Company Number: FR-PFIZER INC-K201100887

PATIENT
  Age: 75 Year
  Sex: Female

DRUGS (9)
  1. ALTACE [Suspect]
     Indication: HYPERTENSION
     Dosage: UNK
     Route: 048
     Dates: start: 20110417, end: 20110708
  2. MINITRAN [Concomitant]
     Dosage: UNK
     Dates: start: 20110528
  3. KANRENOL [Suspect]
     Indication: HYPERTENSION
     Dosage: 1 DF, 1X/DAY
     Route: 048
     Dates: start: 20110417
  4. LASIX [Concomitant]
     Dosage: UNK
     Dates: start: 20090707
  5. PAROXETINE HYDROCHLORIDE [Concomitant]
     Dosage: UNK
  6. SPIRIVA [Concomitant]
     Dosage: UNK
  7. WARFARIN [Concomitant]
     Indication: ATRIAL FIBRILLATION
     Dosage: UNK
     Dates: start: 20101201
  8. ISOPTIN [Concomitant]
     Indication: HYPERTENSIVE CARDIOMYOPATHY
     Dosage: UNK
  9. PANTOPRAZOLE SODIUM [Concomitant]
     Dosage: UNK

REACTIONS (3)
  - SYNCOPE [None]
  - HIP FRACTURE [None]
  - FALL [None]
